FAERS Safety Report 11529308 (Version 1)
Quarter: 2015Q3

REPORT INFORMATION
  Report Type: Spontaneous
  Country: US (occurrence: None)
  Receive Date: 20150918
  Receipt Date: 20150918
  Transmission Date: 20151125
  Serious: Yes (Other)
  Sender: FDA-Public Use
  Company Number: None

PATIENT
  Age: 27 Year
  Sex: Male
  Weight: 74.84 kg

DRUGS (3)
  1. POLYMYXIN B SULFATE + TIMETHOPRI BAUSCH + LOMB [Suspect]
     Active Substance: POLYMYXIN B SULFATE\TRIMETHOPRIM SULFATE
     Indication: EYE INFECTION
     Dosage: 1?6 TIMES DAILY?INTO THE EYE
     Route: 047
     Dates: start: 20150915, end: 20150917
  2. VITAMIN D [Concomitant]
     Active Substance: CHOLECALCIFEROL
  3. FLAX OIL [Concomitant]

REACTIONS (5)
  - Depressive symptom [None]
  - Eye infection [None]
  - Pain [None]
  - Condition aggravated [None]
  - Diarrhoea [None]

NARRATIVE: CASE EVENT DATE: 20150917
